FAERS Safety Report 4977883-X (Version None)
Quarter: 2006Q2

REPORT INFORMATION
  Report Type: 
  Country: None (occurrence: None)
  Receive Date: 20060420
  Receipt Date: 20060410
  Transmission Date: 20061013
  Serious: Yes (Hospitalization)
  Sender: FDA-Public Use
  Company Number: ES-AVENTIS-200612104EU

PATIENT
  Age: 76 Year
  Sex: Male

DRUGS (6)
  1. SEGURIL [Suspect]
     Indication: PROPHYLAXIS
     Route: 048
     Dates: start: 20060130, end: 20060222
  2. ALDACTONE [Suspect]
     Indication: PROPHYLAXIS
     Route: 048
     Dates: start: 20060130, end: 20060222
  3. PROTAMIN ZINC INSULIN [Concomitant]
     Indication: DIABETES MELLITUS
     Dosage: DOSE: 26 UT
     Route: 058
     Dates: end: 20060222
  4. ATROVENT [Concomitant]
     Indication: BRONCHITIS CHRONIC
     Route: 055
     Dates: end: 20060222
  5. SERETIDE [Concomitant]
     Indication: BRONCHITIS CHRONIC
     Dosage: DOSE: 25/50
     Route: 055
     Dates: end: 20060222
  6. OMEPRAZOLE [Concomitant]
     Indication: DUODENAL ULCER
     Route: 048

REACTIONS (1)
  - ENCEPHALOPATHY [None]
